FAERS Safety Report 9146046 (Version 1)
Quarter: 2013Q1

REPORT INFORMATION
  Report Type: Spontaneous
  Country: JP (occurrence: JP)
  Receive Date: 20130307
  Receipt Date: 20130307
  Transmission Date: 20140127
  Serious: No
  Sender: FDA-Public Use
  Company Number: JP-ELI_LILLY_AND_COMPANY-JP201302008547

PATIENT
  Sex: Female

DRUGS (1)
  1. STRATTERA [Suspect]
     Dosage: UNK, BID
     Route: 048
     Dates: start: 2012

REACTIONS (3)
  - Epinephrine increased [Unknown]
  - Glucose urine present [Unknown]
  - Thirst [Unknown]
